FAERS Safety Report 17320609 (Version 1)
Quarter: 2020Q1

REPORT INFORMATION
  Report Type: Spontaneous
  Country: CA (occurrence: CA)
  Receive Date: 20200126
  Receipt Date: 20200126
  Transmission Date: 20200409
  Serious: Yes (Other)
  Sender: FDA-Public Use
  Company Number: CA-CELLTRION INC.-2017CA017670

PATIENT

DRUGS (11)
  1. INFLECTRA [Suspect]
     Active Substance: INFLIXIMAB-DYYB
     Dosage: 5 MG/KG EVERY 0,2,6 WEEKS THEN EVERY 8 WEEKS
     Route: 042
     Dates: start: 20180829
  2. INFLECTRA [Suspect]
     Active Substance: INFLIXIMAB-DYYB
     Dosage: 5 MG/KG EVERY 0,2,6 WEEKS THEN EVERY 8 WEEKS
     Route: 042
     Dates: start: 20180315
  3. INFLECTRA [Suspect]
     Active Substance: INFLIXIMAB-DYYB
     Dosage: 5 MG/KG EVERY 0,2,6 WEEKS THEN EVERY 8 WEEKS
     Route: 042
     Dates: start: 20180509
  4. INFLECTRA [Suspect]
     Active Substance: INFLIXIMAB-DYYB
     Dosage: 5 MG/KG EVERY 0,2,6 WEEKS THEN EVERY 8 WEEKS
     Route: 042
     Dates: start: 20180704
  5. INFLECTRA [Suspect]
     Active Substance: INFLIXIMAB-DYYB
     Dosage: 5 MG/KG EVERY 0,2,6 WEEKS THEN EVERY 8 WEEKS
     Route: 042
     Dates: start: 20190801
  6. INFLECTRA [Suspect]
     Active Substance: INFLIXIMAB-DYYB
     Dosage: 5 MG/KG EVERY 0,2,6 WEEKS THEN EVERY 8 WEEKS
     Route: 042
     Dates: start: 20190927, end: 2019
  7. INFLECTRA [Suspect]
     Active Substance: INFLIXIMAB-DYYB
     Dosage: 5 MG/KG EVERY 0,2,6 WEEKS THEN EVERY 8 WEEKS
     Route: 042
     Dates: start: 20190215
  8. INFLECTRA [Suspect]
     Active Substance: INFLIXIMAB-DYYB
     Dosage: 520 MG EVERY 0,2,6 WEEKS THEN EVERY 8 WEEKS
     Route: 042
     Dates: start: 20180117
  9. INFLECTRA [Suspect]
     Active Substance: INFLIXIMAB-DYYB
     Indication: CROHN^S DISEASE
     Dosage: 520 MG EVERY 0,2,6 WEEKS THEN EVERY 8 WEEKS
     Route: 042
     Dates: start: 20171208
  10. INFLECTRA [Suspect]
     Active Substance: INFLIXIMAB-DYYB
     Dosage: 520 MG EVERY 0,2,6 WEEKS THEN EVERY 8 WEEKS
     Route: 042
     Dates: start: 20171220
  11. INFLECTRA [Suspect]
     Active Substance: INFLIXIMAB-DYYB
     Dosage: 5 MG/KG EVERY 0,2,6 WEEKS THEN EVERY 8 WEEKS
     Route: 042
     Dates: start: 20190607

REACTIONS (14)
  - Therapeutic product effect incomplete [Unknown]
  - Pharyngeal paraesthesia [Recovered/Resolved]
  - Blood pressure increased [Unknown]
  - Malaise [Unknown]
  - Liver function test increased [Unknown]
  - Nasal congestion [Not Recovered/Not Resolved]
  - Weight increased [Not Recovered/Not Resolved]
  - Dizziness [Recovered/Resolved]
  - Rash [Unknown]
  - Sinusitis [Not Recovered/Not Resolved]
  - Autoimmune hepatitis [Unknown]
  - Influenza like illness [Not Recovered/Not Resolved]
  - Migraine [Unknown]
  - Off label use [Unknown]

NARRATIVE: CASE EVENT DATE: 20171220
